FAERS Safety Report 8495429-9 (Version None)
Quarter: 2012Q3

REPORT INFORMATION
  Report Type: 
  Country: None (occurrence: None)
  Receive Date: 20120709
  Receipt Date: 20120629
  Transmission Date: 20120928
  Serious: Yes (Other)
  Sender: FDA-Public Use
  Company Number: FR-UCBSA-060890

PATIENT
  Age: 35 Year
  Sex: Male

DRUGS (4)
  1. TEGRETOL [Concomitant]
     Indication: EPILEPSY
     Dosage: DAILY DOSE : 400 MG
     Route: 048
  2. ZONEGRAN [Concomitant]
     Indication: EPILEPSY
     Dosage: DAILY DOSE : 200 MG
     Route: 048
  3. VIMPAT [Suspect]
     Indication: EPILEPSY
     Dosage: DAILY DOSE : 400 MG
     Route: 048
  4. KEPPRA [Concomitant]
     Indication: EPILEPSY
     Dosage: DAILY DOSE : 3000 MG
     Route: 048

REACTIONS (1)
  - ATRIOVENTRICULAR BLOCK SECOND DEGREE [None]
